FAERS Safety Report 10234750 (Version 1)
Quarter: 2014Q2

REPORT INFORMATION
  Report Type: Spontaneous
  Country: US (occurrence: None)
  Receive Date: 20140506
  Receipt Date: 20140506
  Transmission Date: 20141212
  Serious: Yes (Life-Threatening, Hospitalization)
  Sender: FDA-Public Use
  Company Number: 1279244

PATIENT
  Sex: Female

DRUGS (5)
  1. AVASTIN(BEVACIZUMAB)(BEVACIZUMAB) [Suspect]
     Indication: LUNG NEOPLASM MALIGNANT
     Dosage: 1230 DOSE (1  IN 3 WK)
     Dates: start: 20130719, end: 20130909
  2. CARBOPLATIN(CARBOPLATIN) [Suspect]
     Indication: LUNG NEOPLASM MALIGNANT
     Dosage: 600 DOSE (1 IN 3 WK),INTRAVENOUS (NOT OTHERWISE SPECIFIED)
     Route: 042
     Dates: start: 20130719, end: 20130909
  3. PEMETREXED [Suspect]
     Indication: LUNG NEOPLASM MALIGNANT
     Dosage: 500 DOSE (1 IN 3 WK),INTRAVENOUS (NOT OTHERWISE SPECIFIED)
     Route: 042
     Dates: start: 20130719, end: 20130909
  4. AMLODIPINE(AMLODIPINE) [Concomitant]
  5. ATENOLOL (ATENOLOL) [Concomitant]

REACTIONS (2)
  - Large intestine perforation [None]
  - Large intestine perforation [None]
